FAERS Safety Report 5384030-1 (Version None)
Quarter: 2007Q3

REPORT INFORMATION
  Report Type: 
  Country: None (occurrence: None)
  Receive Date: 20070711
  Receipt Date: 20070710
  Transmission Date: 20080115
  Serious: Yes (Life-Threatening, Other)
  Sender: FDA-Public Use
  Company Number: US-ASTRAZENECA-2007AC00054

PATIENT
  Age: 79 Year
  Sex: Female
  Weight: 50 kg

DRUGS (8)
  1. LIDOCAINE [Suspect]
  2. LIDOCAINE [Interacting]
     Dosage: APPROXIMATELY 800MG ADMINISTERED
     Route: 042
  3. SEVOFLURANE [Interacting]
     Indication: MAINTENANCE OF ANAESTHESIA
  4. FENTANYL TRANSDERMAL SYSTEM [Concomitant]
     Indication: INDUCTION OF ANAESTHESIA
  5. PROPOFOL [Concomitant]
     Indication: INDUCTION OF ANAESTHESIA
  6. ROCURONIUM BROMIDE [Concomitant]
     Indication: INDUCTION OF ANAESTHESIA
  7. MIDAZOLAM HCL [Concomitant]
  8. N2O/O2 [Concomitant]
     Indication: MAINTENANCE OF ANAESTHESIA

REACTIONS (7)
  - ACCIDENTAL OVERDOSE [None]
  - ASTHENIA [None]
  - DRUG INTERACTION [None]
  - HYPOTENSION [None]
  - INCORRECT DRUG ADMINISTRATION RATE [None]
  - LOSS OF CONSCIOUSNESS [None]
  - SUPRAVENTRICULAR EXTRASYSTOLES [None]
